FAERS Safety Report 10083431 (Version 2)
Quarter: 2014Q2

REPORT INFORMATION
  Report Type: Spontaneous
  Country: US (occurrence: US)
  Receive Date: 20140417
  Receipt Date: 20140527
  Transmission Date: 20141212
  Serious: No
  Sender: FDA-Public Use
  Company Number: US-JNJFOC-20140311742

PATIENT
  Sex: Female

DRUGS (3)
  1. INVEGA SUSTENNA [Suspect]
     Indication: SCHIZOPHRENIA
     Route: 030
     Dates: start: 201312, end: 201402
  2. SYNTHROID [Suspect]
     Indication: THYROID DISORDER
     Route: 048
     Dates: start: 201312, end: 201402
  3. SYNTHROID [Suspect]
     Indication: THYROID DISORDER
     Route: 048

REACTIONS (6)
  - Adverse drug reaction [Unknown]
  - Peripheral swelling [Unknown]
  - Thyroid disorder [Unknown]
  - Blood glucose increased [Unknown]
  - Hepatic enzyme abnormal [Unknown]
  - Blood triglycerides increased [Unknown]
